FAERS Safety Report 23238080 (Version 1)
Quarter: 2023Q4

REPORT INFORMATION
  Report Type: Spontaneous
  Country: IT (occurrence: IT)
  Receive Date: 20231129
  Receipt Date: 20231129
  Transmission Date: 20240110
  Serious: Yes (Hospitalization, Other)
  Sender: FDA-Public Use
  Company Number: IT-TAKEDA-2023TUS114189

PATIENT
  Sex: Female

DRUGS (1)
  1. ENANTONE LP [Suspect]
     Active Substance: LEUPROLIDE ACETATE
     Indication: Endometriosis
     Dosage: UNK, MONTHLY
     Route: 065

REACTIONS (7)
  - Rectal stenosis [Unknown]
  - Flushing [Unknown]
  - Irritability [Unknown]
  - Urethral stenosis [Unknown]
  - Neurogenic bladder [Unknown]
  - Endometriosis [Recovered/Resolved]
  - Amenorrhoea [Unknown]

NARRATIVE: CASE EVENT DATE: 19980101
